FAERS Safety Report 21864487 (Version 2)
Quarter: 2023Q1

REPORT INFORMATION
  Report Type: Other
  Country: US (occurrence: None)
  Receive Date: 20230116
  Receipt Date: 20230118
  Transmission Date: 20230417
  Serious: No
  Sender: FDA-Public Use
  Company Number: US-ROCHE-3263019

PATIENT
  Age: 46 Year
  Sex: Female

DRUGS (1)
  1. OCREVUS [Suspect]
     Active Substance: OCRELIZUMAB
     Indication: Relapsing multiple sclerosis
     Dosage: 300MG IV X 1 FOLLOWED 2 WEEKS LATER BY 300MG IV, DOT: 16-FEB-2022,01-MAR-2019
     Route: 042
     Dates: start: 20180227

REACTIONS (1)
  - COVID-19 [Recovered/Resolved]
